FAERS Safety Report 7243036-8 (Version None)
Quarter: 2011Q1

REPORT INFORMATION
  Report Type: 
  Country: None (occurrence: None)
  Receive Date: 20110125
  Receipt Date: 20101004
  Transmission Date: 20110831
  Serious: Yes (Other)
  Sender: FDA-Public Use
  Company Number: US-AMGEN-KDL436700

PATIENT
  Age: 81 Year
  Sex: Female
  Weight: 67.2 kg

DRUGS (14)
  1. CELECOXIB [Concomitant]
     Dosage: 200 MG, QID
     Route: 048
  2. UNKNOWN DRUG[INGREDIENT UNKNOWN] [Concomitant]
     Dosage: UNK UNK, QID
     Route: 048
  3. OMEPRAZOLE [Concomitant]
     Dosage: 20 MG, QID
     Route: 048
  4. PROLIA [Suspect]
     Indication: OSTEOPOROSIS POSTMENOPAUSAL
     Dosage: 60 MG, Q6MO
     Route: 058
     Dates: start: 20100820
  5. BENAZEPRIL [Concomitant]
     Dosage: UNK UNK, QD
  6. CALCIUM [Concomitant]
     Dosage: 600 MG, QID
     Route: 048
  7. AMLODIPINE [Concomitant]
     Dosage: UNK UNK, QD
  8. ASCORBIC ACID [Concomitant]
     Dosage: UNK UNK, QID
     Route: 047
  9. THYROID TAB [Concomitant]
     Dosage: 30 MG, UNK
     Route: 048
  10. DORZOLAMIDE HYDROCHLORIDE AND TIMOLOL MALEATE [Concomitant]
     Dosage: UNK UNK, BID
  11. WARFARIN SODIUM [Concomitant]
     Dosage: 5 MG, QID
     Route: 048
  12. LOVAZA [Concomitant]
     Dosage: UNK UNK, QID
     Route: 048
  13. ERGOCALCIFEROL [Concomitant]
     Dosage: UNK UNK, QID
     Route: 048
  14. ATORVASTATIN CALCIUM [Concomitant]
     Dosage: 20 MG, UNK
     Route: 048

REACTIONS (6)
  - OEDEMA PERIPHERAL [None]
  - PAIN IN EXTREMITY [None]
  - ARTHRALGIA [None]
  - FEELING HOT [None]
  - JOINT WARMTH [None]
  - CELLULITIS [None]
